FAERS Safety Report 15314339 (Version 2)
Quarter: 2018Q3

REPORT INFORMATION
  Report Type: Spontaneous
  Country: CN (occurrence: CN)
  Receive Date: 20180824
  Receipt Date: 20180914
  Transmission Date: 20181010
  Serious: Yes (Hospitalization)
  Sender: FDA-Public Use
  Company Number: CN-CONCORDIA PHARMACEUTICALS INC.-GSH201808-003061

PATIENT
  Age: 41 Year
  Sex: Female

DRUGS (3)
  1. PREDNISONE. [Concomitant]
     Active Substance: PREDNISONE
     Indication: SYSTEMIC LUPUS ERYTHEMATOSUS
  2. PREDNISONE. [Concomitant]
     Active Substance: PREDNISONE
     Dosage: 30 MG ONCE A DAY INCREASED TO 60 MG ONCE A DAY
  3. HYDROXYCHLOROQUINE [Suspect]
     Active Substance: HYDROXYCHLOROQUINE
     Indication: SYSTEMIC LUPUS ERYTHEMATOSUS
     Route: 065

REACTIONS (9)
  - Hyperkeratosis [Recovering/Resolving]
  - Skin exfoliation [Recovering/Resolving]
  - Dermatitis exfoliative generalised [Recovering/Resolving]
  - Acanthosis [Recovering/Resolving]
  - Erythema [Recovering/Resolving]
  - Parakeratosis [Recovering/Resolving]
  - Alopecia [Recovering/Resolving]
  - Erythrodermic psoriasis [Recovering/Resolving]
  - Leukocytosis [Recovering/Resolving]
